FAERS Safety Report 15945102 (Version 1)
Quarter: 2019Q1

REPORT INFORMATION
  Report Type: Spontaneous
  Country: US (occurrence: US)
  Receive Date: 20190211
  Receipt Date: 20190211
  Transmission Date: 20190417
  Serious: Yes (Death)
  Sender: FDA-Public Use
  Company Number: None

PATIENT
  Age: 33 Year
  Sex: Male

DRUGS (3)
  1. INHALED HYDROCARBONS [Concomitant]
  2. 2,4,5-TRIMETHOXYAMPHETAMINE [Suspect]
     Active Substance: 2,4,5-TRIMETHOXYAMPHETAMINE
  3. KRATOM [Suspect]
     Active Substance: HERBALS\MITRAGYNINE

REACTIONS (1)
  - Death [None]

NARRATIVE: CASE EVENT DATE: 20170811
